FAERS Safety Report 5061813-9 (Version None)
Quarter: 2006Q3

REPORT INFORMATION
  Report Type: 
  Country: None (occurrence: None)
  Receive Date: 20060726
  Receipt Date: 20060720
  Transmission Date: 20061208
  Serious: Yes (Other)
  Sender: FDA-Public Use
  Company Number: US-JNJFOC-20060600083

PATIENT
  Sex: Female
  Weight: 100.7 kg

DRUGS (2)
  1. LEVAQUIN [Suspect]
     Route: 048
  2. LEVAQUIN [Suspect]
     Indication: SINUSITIS
     Route: 048

REACTIONS (6)
  - ARTHRALGIA [None]
  - ARTHROPATHY [None]
  - BACK PAIN [None]
  - BURSITIS [None]
  - DRUG HYPERSENSITIVITY [None]
  - THERAPY NON-RESPONDER [None]
